FAERS Safety Report 13717326 (Version 1)
Quarter: 2017Q3

REPORT INFORMATION
  Report Type: Spontaneous
  Country: CH (occurrence: CH)
  Receive Date: 20170705
  Receipt Date: 20170705
  Transmission Date: 20171127
  Serious: Yes (Hospitalization)
  Sender: FDA-Public Use
  Company Number: CH-TEVA-782026ISR

PATIENT
  Age: 43 Year
  Sex: Female

DRUGS (11)
  1. CLEXANE [Concomitant]
     Active Substance: ENOXAPARIN SODIUM
  2. FLUCONAZOLE. [Suspect]
     Active Substance: FLUCONAZOLE
     Dosage: 200 MILLIGRAM DAILY;
     Route: 048
     Dates: start: 20170514, end: 20170521
  3. AZACTAM [Concomitant]
     Active Substance: AZTREONAM
     Dates: start: 20170611, end: 20170615
  4. SEVREDOL [Concomitant]
     Active Substance: MORPHINE
  5. PALLADON [Concomitant]
     Active Substance: HYDROMORPHONE
  6. VANCOMYCINE [Concomitant]
     Active Substance: VANCOMYCIN
     Dates: start: 20170611, end: 20170615
  7. ANXIOLIT [Concomitant]
     Active Substance: OXAZEPAM
  8. CO-AMOXI [Suspect]
     Active Substance: AMOXICILLIN\CLAVULANATE POTASSIUM
     Dosage: 4.8 GRAM DAILY;
     Route: 040
     Dates: start: 20170510, end: 20170514
  9. ZOLPIDEM [Concomitant]
     Active Substance: ZOLPIDEM\ZOLPIDEM TARTRATE
  10. CEFEPIME [Suspect]
     Active Substance: CEFEPIME HYDROCHLORIDE
     Dosage: 4 GRAM DAILY;
     Route: 040
     Dates: start: 20170514, end: 20170611
  11. DAFALGAN [Concomitant]
     Active Substance: ACETAMINOPHEN

REACTIONS (2)
  - Bicytopenia [Recovered/Resolved]
  - Rash [Recovered/Resolved]

NARRATIVE: CASE EVENT DATE: 20170611
